FAERS Safety Report 21598414 (Version 1)
Quarter: 2022Q4

REPORT INFORMATION
  Report Type: Spontaneous
  Country: JP (occurrence: JP)
  Receive Date: 20221115
  Receipt Date: 20221115
  Transmission Date: 20230113
  Serious: Yes (Other)
  Sender: FDA-Public Use
  Company Number: JP-MLMSERVICE-20221031-3891810-1

PATIENT
  Sex: Male

DRUGS (14)
  1. DOXORUBICIN [Suspect]
     Active Substance: DOXORUBICIN
     Indication: Metastases to lung
     Dosage: UNK
     Route: 065
     Dates: start: 2021
  2. DOXORUBICIN [Suspect]
     Active Substance: DOXORUBICIN
     Indication: Malignant neoplasm of spermatic cord
     Dosage: 2 CYCLES
     Route: 065
     Dates: start: 20010202
  3. DOXORUBICIN [Suspect]
     Active Substance: DOXORUBICIN
     Indication: Metastases to bone
     Dosage: TOTAL 4 CYCLES
     Route: 065
     Dates: end: 202105
  4. DOXORUBICIN [Suspect]
     Active Substance: DOXORUBICIN
     Indication: Undifferentiated sarcoma
  5. IFOSFAMIDE [Suspect]
     Active Substance: IFOSFAMIDE
     Indication: Malignant neoplasm of spermatic cord
     Dosage: UNK
     Route: 065
     Dates: start: 2021, end: 2021
  6. IFOSFAMIDE [Suspect]
     Active Substance: IFOSFAMIDE
     Indication: Metastases to lung
  7. IFOSFAMIDE [Suspect]
     Active Substance: IFOSFAMIDE
     Indication: Metastases to bone
  8. IFOSFAMIDE [Suspect]
     Active Substance: IFOSFAMIDE
     Indication: Undifferentiated sarcoma
  9. DABRAFENIB [Concomitant]
     Active Substance: DABRAFENIB
     Indication: Soft tissue sarcoma
     Dosage: 300 MG TWICE A DAY
     Route: 065
  10. DABRAFENIB [Concomitant]
     Active Substance: DABRAFENIB
     Indication: BRAF gene mutation
     Dosage: 200 MG TWICE A DAY
     Route: 065
  11. DABRAFENIB [Concomitant]
     Active Substance: DABRAFENIB
     Indication: Malignant neoplasm of spermatic cord
     Dosage: 100 MG TWICE DAILY
     Route: 065
  12. TRAMETINIB [Concomitant]
     Active Substance: TRAMETINIB
     Indication: Soft tissue sarcoma
     Dosage: 2 MG ONCE A DAY
     Route: 065
  13. TRAMETINIB [Concomitant]
     Active Substance: TRAMETINIB
     Indication: BRAF gene mutation
     Dosage: 1.5 MG ONCE DAILY
     Route: 065
  14. TRAMETINIB [Concomitant]
     Active Substance: TRAMETINIB
     Indication: Malignant neoplasm of spermatic cord

REACTIONS (6)
  - Paraplegia [Unknown]
  - Febrile neutropenia [Unknown]
  - Haematuria [Unknown]
  - Neutropenia [Unknown]
  - Diplopia [Unknown]
  - Decreased appetite [Unknown]

NARRATIVE: CASE EVENT DATE: 20210101
